FAERS Safety Report 5784603-8 (Version None)
Quarter: 2008Q2

REPORT INFORMATION
  Report Type: 
  Country: None (occurrence: None)
  Receive Date: 20080624
  Receipt Date: 20070606
  Transmission Date: 20081010
  Serious: No
  Sender: FDA-Public Use
  Company Number: US-ASTRAZENECA-2007UW11049

PATIENT
  Age: 29772 Day
  Sex: Female
  Weight: 90.7 kg

DRUGS (18)
  1. PULMICORT-100 [Suspect]
     Indication: ASTHMA
     Route: 055
     Dates: start: 20070404, end: 20070409
  2. PULMICORT-100 [Suspect]
     Indication: CHRONIC OBSTRUCTIVE PULMONARY DISEASE
     Route: 055
     Dates: start: 20070404, end: 20070409
  3. IPATROPIUM [Concomitant]
  4. ALBUTEROL [Concomitant]
  5. LISINOPRIL [Concomitant]
  6. WARFARIN SODIUM [Concomitant]
  7. METOPROLOL [Concomitant]
     Route: 048
  8. NITROGLYCERIN [Concomitant]
  9. CALCIUM [Concomitant]
  10. FISH OIL [Concomitant]
  11. ADVAIR DISKUS 100/50 [Concomitant]
     Indication: ASTHMA
     Dosage: 250/50
     Route: 055
  12. ADVAIR DISKUS 100/50 [Concomitant]
     Indication: CHRONIC OBSTRUCTIVE PULMONARY DISEASE
     Dosage: 250/50
     Route: 055
  13. COMBIVENT [Concomitant]
     Indication: ASTHMA
     Route: 055
  14. COMBIVENT [Concomitant]
     Indication: CHRONIC OBSTRUCTIVE PULMONARY DISEASE
     Route: 055
  15. COLACE [Concomitant]
     Route: 048
  16. ASPIRIN [Concomitant]
     Route: 048
  17. COUMADIN [Concomitant]
     Route: 048
  18. LASIX [Concomitant]
     Route: 048

REACTIONS (1)
  - ONYCHOCLASIS [None]
